FAERS Safety Report 9590098 (Version 1)
Quarter: 2013Q4

REPORT INFORMATION
  Report Type: Spontaneous
  Country: US (occurrence: US)
  Receive Date: 20131003
  Receipt Date: 20131003
  Transmission Date: 20140711
  Serious: No
  Sender: FDA-Public Use
  Company Number: US-AMGEN-USASP2012074513

PATIENT
  Sex: Female

DRUGS (10)
  1. ENBREL [Suspect]
     Indication: PRODUCT USED FOR UNKNOWN INDICATION
     Dosage: 50 MG, QWK
     Route: 058
     Dates: start: 2009
  2. ENBREL [Suspect]
  3. LIVALO [Concomitant]
     Dosage: 2 MG, UNK
  4. MELOXICAM [Concomitant]
     Dosage: 7.5 MG, UNK
  5. METHOTREXATE [Concomitant]
     Dosage: 2.5 MG, UNK
  6. VALIUM                             /00017001/ [Concomitant]
     Dosage: 2 MG, UNK
  7. PRILOSEC                           /00661201/ [Concomitant]
     Dosage: 40 MG, UNK
  8. HYDROCODONE/APAP [Concomitant]
     Dosage: 5-325 MG
  9. FISH OIL [Concomitant]
     Dosage: 1000 MG, UNK
  10. CALCIUM +D                         /00944201/ [Concomitant]
     Dosage: UNK

REACTIONS (1)
  - Injection site extravasation [Unknown]
